FAERS Safety Report 17604748 (Version 1)
Quarter: 2020Q1

REPORT INFORMATION
  Report Type: Spontaneous
  Country: ES (occurrence: ES)
  Receive Date: 20200331
  Receipt Date: 20200331
  Transmission Date: 20200409
  Serious: Yes (Other)
  Sender: FDA-Public Use
  Company Number: ES-ACCORD-177886

PATIENT
  Age: 65 Year
  Sex: Male

DRUGS (6)
  1. PREDNISOLONE. [Concomitant]
     Active Substance: PREDNISOLONE
     Dosage: 10MG/ML SOLUTION STARTING 6 TIMES DAILY AND TAPERED 1 DROP PER WEEK
     Route: 047
     Dates: start: 2016
  2. PREDNISOLONE ACETATE. [Concomitant]
     Active Substance: PREDNISOLONE ACETATE
     Dosage: 10MG/ML STARTING 6 TIMES DAILY AND TAPERED 1 DROP PER WEEK
     Route: 047
     Dates: start: 2016
  3. VIGAMOX [Suspect]
     Active Substance: MOXIFLOXACIN HYDROCHLORIDE
     Indication: PROPHYLAXIS
     Dosage: INTRACAMERAL MOXIFLOXACIN; 0.1ML OF 5MG/ML MOXIFLOXACIN WAS INJECTED
     Route: 031
     Dates: start: 20160215, end: 20160215
  4. MITOMYCIN. [Suspect]
     Active Substance: MITOMYCIN
     Indication: SCAR
     Dosage: SPONGE SOAKED IN 0.2 MG/ML MITOMYCIN C WAS APPLIED UNDER THE CONJUNCTIVA,
     Route: 047
     Dates: start: 20160215, end: 20160215
  5. VIGAMOX [Suspect]
     Active Substance: MOXIFLOXACIN HYDROCHLORIDE
     Indication: PROPHYLAXIS
     Dosage: 1 DROP 4 TIMES DAILY FOR TEN DAYS
     Route: 061
     Dates: start: 20160216, end: 20160222
  6. HYALURONIC ACID [Concomitant]
     Active Substance: HYALURONIC ACID
     Dosage: 10 MG/ML INTO THE ANTERIOR CHAMBER
     Route: 047
     Dates: start: 201602, end: 201602

REACTIONS (5)
  - Anterior chamber pigmentation [Recovered/Resolved]
  - Pupillary disorder [Not Recovered/Not Resolved]
  - Mydriasis [Not Recovered/Not Resolved]
  - Iris disorder [Recovered/Resolved]
  - Visual acuity reduced [Not Recovered/Not Resolved]

NARRATIVE: CASE EVENT DATE: 20160307
